FAERS Safety Report 4560733-3 (Version None)
Quarter: 2005Q1

REPORT INFORMATION
  Report Type: 
  Country: None (occurrence: None)
  Receive Date: 20050121
  Receipt Date: 20050112
  Transmission Date: 20050727
  Serious: Yes (Other)
  Sender: FDA-Public Use
  Company Number: 2005-01-1157

PATIENT
  Age: 41 Year
  Sex: Male

DRUGS (1)
  1. GARASONE [Suspect]
     Dosage: 3 DROPS QID OTIC

REACTIONS (4)
  - BALANCE DISORDER [None]
  - HYPOACUSIS [None]
  - VERTIGO [None]
  - VESTIBULAR DISORDER [None]
